FAERS Safety Report 6263112-6 (Version None)
Quarter: 2009Q3

REPORT INFORMATION
  Report Type: 
  Country: None (occurrence: None)
  Receive Date: 20090710
  Receipt Date: 20090702
  Transmission Date: 20100115
  Serious: Yes (Death)
  Sender: FDA-Public Use
  Company Number: IT-B.I. PHARMACEUTICALS,INC./RIDGEFIELD-2009-DE-04647GD

PATIENT
  Age: 52 Year
  Sex: Male

DRUGS (7)
  1. DIPYRIDAMOLE [Suspect]
     Indication: ANTIPLATELET THERAPY
     Dosage: 800 MG
     Route: 042
  2. DIPYRIDAMOLE [Suspect]
     Dosage: 800 MG
     Route: 048
  3. ASPIRIN [Suspect]
     Indication: ANTIPLATELET THERAPY
     Dosage: 100 MG
  4. WARFARIN SODIUM [Suspect]
     Indication: ANTICOAGULANT THERAPY
     Dosage: IN DOSAGES ACCORDING TO AN INR OF PROTHROMBIN TIME 2.0 TO 2.5 TIMES THE NORMAL VALUE
  5. ENOXAPARIN SODIUM [Suspect]
     Indication: ANTICOAGULANT THERAPY
     Dosage: 4000 TO 8000 IU
  6. PENTOXIFYLLINE [Suspect]
     Indication: ANTICOAGULANT THERAPY
     Dosage: 400 MG
     Route: 042
  7. PENTOXIFYLLINE [Suspect]
     Dosage: 800 MG
     Route: 048

REACTIONS (2)
  - HAEMORRHAGE INTRACRANIAL [None]
  - MULTI-ORGAN FAILURE [None]
